FAERS Safety Report 4626453-1 (Version None)
Quarter: 2005Q1

REPORT INFORMATION
  Report Type: 
  Country: None (occurrence: None)
  Receive Date: 20050330
  Receipt Date: 20050310
  Transmission Date: 20050727
  Serious: Yes (Hospitalization)
  Sender: FDA-Public Use
  Company Number: USA050291018

PATIENT
  Age: 73 Year
  Sex: Female

DRUGS (9)
  1. FORTEO [Suspect]
     Indication: OSTEOPOROSIS
  2. LOPRESSOR [Concomitant]
  3. CALCIUM CARBONATE [Concomitant]
  4. PLAVIX [Concomitant]
  5. DITROPAN [Concomitant]
  6. ALTACE (RAMIPRIL DURA) [Concomitant]
  7. HYDROCHLOROTHIAZIDE [Concomitant]
  8. ASCORBIC ACID [Concomitant]
  9. HYDRALAZINE [Concomitant]

REACTIONS (1)
  - PYREXIA [None]
